FAERS Safety Report 14553680 (Version 1)
Quarter: 2018Q1

REPORT INFORMATION
  Report Type: Report from Study
  Country: US (occurrence: US)
  Receive Date: 20180220
  Receipt Date: 20180220
  Transmission Date: 20180509
  Serious: No
  Sender: FDA-Public Use
  Company Number: US-BIOVERATIV-2018BV000068

PATIENT
  Sex: Male

DRUGS (1)
  1. ALPROLIX [Suspect]
     Active Substance: EFTRENONACOG ALFA
     Indication: FACTOR IX DEFICIENCY
     Dosage: 6000 UNITS
     Route: 065
     Dates: start: 20140801

REACTIONS (2)
  - Musculoskeletal pain [Unknown]
  - Arthralgia [Unknown]
